FAERS Safety Report 6978885-4 (Version None)
Quarter: 2010Q3

REPORT INFORMATION
  Report Type: 
  Country: None (occurrence: None)
  Receive Date: 20100908
  Receipt Date: 20100830
  Transmission Date: 20110219
  Serious: Yes (Death, Other)
  Sender: FDA-Public Use
  Company Number: 2010US003230

PATIENT
  Age: 66 Year
  Sex: Male
  Weight: 87 kg

DRUGS (13)
  1. PROGRAF [Suspect]
     Indication: RENAL TRANSPLANT
     Dosage: 1 MG, BID, ORAL
     Route: 048
     Dates: start: 20050401
  2. ATENOLOL [Concomitant]
  3. CHLORPROMAZINE [Concomitant]
  4. CIALIS [Concomitant]
  5. COMBIVENT (IPRATROPIUM BROMIDE) [Concomitant]
  6. FLEXERIL [Concomitant]
  7. LASIX [Concomitant]
  8. HYDRALAZINE HCL [Concomitant]
  9. LORTAB [Concomitant]
  10. LEFLUNOMIDE [Concomitant]
  11. LISINOPRIL HCT (HYDROCHLOROTHIAZIDE, LISINOPRIL) [Concomitant]
  12. OMEPRAZOLE [Concomitant]
  13. PREDNISONE [Concomitant]

REACTIONS (7)
  - ARTHRALGIA [None]
  - CARDIAC FAILURE CONGESTIVE [None]
  - CHRONIC OBSTRUCTIVE PULMONARY DISEASE [None]
  - CONSTIPATION [None]
  - GASTRODUODENAL ULCER [None]
  - IRON DEFICIENCY ANAEMIA [None]
  - POLYOMAVIRUS-ASSOCIATED NEPHROPATHY [None]
